FAERS Safety Report 7325776-5 (Version None)
Quarter: 2011Q1

REPORT INFORMATION
  Report Type: 
  Country: None (occurrence: None)
  Receive Date: 20110225
  Receipt Date: 20110225
  Transmission Date: 20110831
  Serious: No
  Sender: FDA-Public Use
  Company Number: None

PATIENT
  Age: 53 Year
  Sex: Male
  Weight: 108.8633 kg

DRUGS (3)
  1. CVS/ALCOHOL PREP SWABS 100 SWABS 70% ISOPROPYL ALCOHOL CVS PHARMACY [Suspect]
     Indication: DIABETES MELLITUS
     Dosage: 2.9X3.2 CM EVERY DAY TOP DAILY
     Route: 061
     Dates: start: 20110101, end: 20110222
  2. CVS/ALCOHOL PREP SWABS 100 SWABS 70% ISOPROPYL ALCOHOL CVS PHARMACY [Suspect]
     Indication: BLOOD TEST
     Dosage: 2.9X3.2 CM EVERY DAY TOP DAILY
     Route: 061
     Dates: start: 20110101, end: 20110222
  3. HYDROCORTISONE [Concomitant]

REACTIONS (1)
  - RASH [None]
